FAERS Safety Report 24036809 (Version 1)
Quarter: 2024Q3

REPORT INFORMATION
  Report Type: Spontaneous
  Country: CA (occurrence: CA)
  Receive Date: 20240701
  Receipt Date: 20240701
  Transmission Date: 20241017
  Serious: Yes (Other)
  Sender: SANDOZ
  Company Number: CA-002147023-NVSC2023CA145244

PATIENT
  Age: 80 Year
  Sex: Male

DRUGS (1)
  1. ERELZI [Suspect]
     Active Substance: ETANERCEPT-SZZS
     Indication: Rheumatoid arthritis
     Dosage: 50 MG, QW
     Route: 058
     Dates: start: 20221019

REACTIONS (8)
  - Metastases to pelvis [Unknown]
  - Bladder cancer [Unknown]
  - Movement disorder [Unknown]
  - Gait disturbance [Unknown]
  - Decreased activity [Unknown]
  - Movement disorder [Unknown]
  - Musculoskeletal chest pain [Unknown]
  - Loss of personal independence in daily activities [Unknown]
